FAERS Safety Report 8672564 (Version 7)
Quarter: 2014Q1

REPORT INFORMATION
  Report Type: Spontaneous
  Country: US (occurrence: US)
  Receive Date: 20120719
  Receipt Date: 20140313
  Transmission Date: 20141002
  Serious: Yes (Hospitalization, Disabling, Other)
  Sender: FDA-Public Use
  Company Number: US-009507513-1207USA004080

PATIENT
  Sex: Female
  Weight: 59.41 kg

DRUGS (7)
  1. FOSAMAX [Suspect]
     Indication: OSTEOPENIA
     Dosage: 5 MG, QD
     Route: 048
     Dates: start: 199811, end: 20010626
  2. FOSAMAX [Suspect]
     Indication: OSTEOPOROSIS
     Dosage: 70 MG, QW
     Route: 048
     Dates: start: 20010627
  3. FOSAMAX [Suspect]
     Indication: OSTEOPOROSIS
  4. ALENDRONATE SODIUM [Suspect]
     Indication: OSTEOPENIA
     Dosage: 70 MG, QW
     Route: 048
     Dates: start: 20080307, end: 20101214
  5. ALENDRONATE SODIUM [Suspect]
     Indication: OSTEOPOROSIS
  6. FOSAMAX [Suspect]
     Indication: OSTEOPOROSIS
     Dosage: 70 MG, QW
     Route: 048
     Dates: start: 20110720, end: 20111127
  7. FOSAMAX [Suspect]
     Indication: OSTEOPENIA

REACTIONS (58)
  - Femur fracture [Not Recovered/Not Resolved]
  - Low turnover osteopathy [Not Recovered/Not Resolved]
  - Open reduction of fracture [Unknown]
  - Osteoporosis [Not Recovered/Not Resolved]
  - Multiple fractures [Not Recovered/Not Resolved]
  - Skin cancer [Unknown]
  - Knee arthroplasty [Unknown]
  - Anaemia postoperative [Unknown]
  - Appendix disorder [Unknown]
  - Femur fracture [Not Recovered/Not Resolved]
  - Gingival disorder [Unknown]
  - Hypertension [Unknown]
  - Anxiety [Unknown]
  - Tendon disorder [Unknown]
  - Acrochordon [Unknown]
  - Hypercholesterolaemia [Unknown]
  - Arthritis [Unknown]
  - Supraventricular tachycardia [Unknown]
  - Autoimmune thyroiditis [Not Recovered/Not Resolved]
  - Hyperlipidaemia [Unknown]
  - Haematuria [Unknown]
  - Adverse drug reaction [Unknown]
  - Melanosis coli [Unknown]
  - Adverse drug reaction [Unknown]
  - Labyrinthitis [Unknown]
  - Hypothyroidism [Unknown]
  - Syncope [Unknown]
  - Sciatica [Unknown]
  - Radiculopathy [Unknown]
  - Major depression [Not Recovered/Not Resolved]
  - Uterine leiomyoma [Unknown]
  - Osteoarthritis [Not Recovered/Not Resolved]
  - Lower respiratory tract infection [Unknown]
  - Spinal column stenosis [Not Recovered/Not Resolved]
  - Irritable bowel syndrome [Unknown]
  - Hypotension [Unknown]
  - Procedural headache [Unknown]
  - Fall [Unknown]
  - Joint injury [Unknown]
  - Joint effusion [Unknown]
  - Synovial cyst [Unknown]
  - Bone marrow oedema [Unknown]
  - Osteochondritis [Unknown]
  - Osteoarthritis [Unknown]
  - Femoroacetabular impingement [Unknown]
  - Dental care [Unknown]
  - Fall [Unknown]
  - Joint injury [Unknown]
  - Infection [Unknown]
  - Gingivitis [Unknown]
  - Insomnia [Unknown]
  - Dry eye [Unknown]
  - Urinary tract infection [Unknown]
  - Pain [Unknown]
  - Myalgia [Unknown]
  - Musculoskeletal discomfort [Unknown]
  - Constipation [Not Recovered/Not Resolved]
  - Gastrooesophageal reflux disease [Not Recovered/Not Resolved]
